FAERS Safety Report 20365824 (Version 7)
Quarter: 2023Q1

REPORT INFORMATION
  Report Type: Spontaneous
  Country: US (occurrence: US)
  Receive Date: 20220123
  Receipt Date: 20230304
  Transmission Date: 20230417
  Serious: Yes (Hospitalization, Other)
  Sender: FDA-Public Use
  Company Number: US-UCBSA-2022002301

PATIENT
  Age: 72 Year
  Sex: Female
  Weight: 71.202 kg

DRUGS (1)
  1. CIMZIA [Suspect]
     Active Substance: CERTOLIZUMAB PEGOL
     Indication: Rheumatoid arthritis
     Dosage: 400 MILLIGRAM, EV 4 WEEKS
     Route: 058
     Dates: start: 202110

REACTIONS (11)
  - Spinal nerve stimulator implantation [Unknown]
  - Back disorder [Unknown]
  - Heart rate irregular [Unknown]
  - Foot operation [Unknown]
  - COVID-19 [Unknown]
  - Ocular hyperaemia [Unknown]
  - Dry eye [Unknown]
  - Nasopharyngitis [Unknown]
  - Ear infection [Unknown]
  - Therapy interrupted [Unknown]
  - Intentional dose omission [Unknown]

NARRATIVE: CASE EVENT DATE: 20220101
